APPROVED DRUG PRODUCT: CORTICOTROPIN
Active Ingredient: CORTICOTROPIN
Strength: 40 UNITS/ML
Dosage Form/Route: INJECTABLE;INJECTION
Application: N010831 | Product #001
Applicant: ORGANICS LAGRANGE INC
Approved: Approved Prior to Jan 1, 1982 | RLD: No | RS: No | Type: DISCN